FAERS Safety Report 4636125-5 (Version None)
Quarter: 2005Q2

REPORT INFORMATION
  Report Type: 
  Country: None (occurrence: None)
  Receive Date: 20050325
  Receipt Date: 20050103
  Transmission Date: 20051028
  Serious: No
  Sender: FDA-Public Use
  Company Number: USA040670484

PATIENT
  Age: 76 Year
  Sex: Female
  Weight: 80 kg

DRUGS (9)
  1. FORTEO [Suspect]
     Indication: OSTEOPOROSIS
     Dosage: 20 UG/1 DAY
     Dates: start: 20040101
  2. MEDROL (METHYLPRENISOLONE) [Concomitant]
  3. AVANDIA [Concomitant]
  4. GLUCOTROL [Concomitant]
  5. SINGULAIR (MONTELUKAST) [Concomitant]
  6. OMEPRAZOLE [Concomitant]
  7. MAXAIR [Concomitant]
  8. LEVOXYL [Concomitant]
  9. HUMULIN [Concomitant]

REACTIONS (11)
  - ASTHENIA [None]
  - ASTHMA [None]
  - BODY HEIGHT DECREASED [None]
  - CHOKING [None]
  - COUGH [None]
  - FEELING ABNORMAL [None]
  - INFLUENZA [None]
  - KIDNEY INFECTION [None]
  - LOWER RESPIRATORY TRACT INFECTION [None]
  - RESPIRATORY DISORDER [None]
  - WEIGHT INCREASED [None]
